FAERS Safety Report 9922482 (Version 1)
Quarter: 2014Q1

REPORT INFORMATION
  Report Type: Spontaneous
  Country: CA (occurrence: CA)
  Receive Date: 20140225
  Receipt Date: 20140225
  Transmission Date: 20141002
  Serious: Yes (Other)
  Sender: FDA-Public Use
  Company Number: CA-009507513-1402CAN011786

PATIENT
  Sex: Male
  Weight: 72.56 kg

DRUGS (2)
  1. INTRON A [Suspect]
     Indication: MALIGNANT MELANOMA
     Dosage: 18 MILLION IU, Q3W
     Route: 065
     Dates: start: 20130701, end: 20140128
  2. TYLENOL [Concomitant]
     Indication: PYREXIA
     Dosage: UNK, PRN
     Route: 065

REACTIONS (3)
  - Metastases to kidney [Unknown]
  - Metastases to lung [Unknown]
  - Drug ineffective [Unknown]
